FAERS Safety Report 24338773 (Version 1)
Quarter: 2024Q3

REPORT INFORMATION
  Report Type: Spontaneous
  Country: US (occurrence: US)
  Receive Date: 20240919
  Receipt Date: 20240919
  Transmission Date: 20241017
  Serious: No
  Sender: SANOFI AVENTIS
  Company Number: US-SA-2024SA266143

PATIENT
  Age: 53 Year
  Sex: Female

DRUGS (1)
  1. FABRAZYME [Suspect]
     Active Substance: AGALSIDASE BETA
     Dosage: UNK

REACTIONS (2)
  - Globotriaosylceramide increased [Unknown]
  - Globotriaosylsphingosine increased [Unknown]

NARRATIVE: CASE EVENT DATE: 20220813
